FAERS Safety Report 7259912-6 (Version None)
Quarter: 2011Q1

REPORT INFORMATION
  Report Type: 
  Country: None (occurrence: None)
  Receive Date: 20110130
  Receipt Date: 20100917
  Transmission Date: 20110831
  Serious: No
  Sender: FDA-Public Use
  Company Number: US-ABBOTT-10P-163-0671449-00

PATIENT
  Age: 63 Year
  Sex: Male

DRUGS (1)
  1. HUMIRA [Suspect]
     Indication: CROHN'S DISEASE
     Route: 058

REACTIONS (5)
  - GASTROOESOPHAGEAL REFLUX DISEASE [None]
  - CHEST X-RAY ABNORMAL [None]
  - COUGH [None]
  - SINUSITIS [None]
  - OROPHARYNGEAL PAIN [None]
